FAERS Safety Report 17824193 (Version 2)
Quarter: 2020Q2

REPORT INFORMATION
  Report Type: Report from Study
  Country: US (occurrence: US)
  Receive Date: 20200526
  Receipt Date: 20200604
  Transmission Date: 20200714
  Serious: Yes (Death, Hospitalization, Other)
  Sender: FDA-Public Use
  Company Number: US-GILEAD-2020-0467602

PATIENT
  Age: 78 Year
  Sex: Female
  Weight: 80.27 kg

DRUGS (9)
  1. NOVOLIN 30R [INSULIN] [Concomitant]
  2. AMIODARONE [Concomitant]
     Active Substance: AMIODARONE
  3. TORSEMIDE. [Concomitant]
     Active Substance: TORSEMIDE
  4. ISOSORBIDE. [Concomitant]
     Active Substance: ISOSORBIDE
  5. AMBRISENTAN [Suspect]
     Active Substance: AMBRISENTAN
     Indication: PULMONARY ARTERIAL HYPERTENSION
     Dosage: 10 MG, UNK
     Route: 048
     Dates: start: 2014
  6. COREG [Concomitant]
     Active Substance: CARVEDILOL
  7. LOSARTAN. [Concomitant]
     Active Substance: LOSARTAN
  8. ASPRIN [Concomitant]
     Active Substance: ASPIRIN
  9. POTASSIUM [Concomitant]
     Active Substance: POTASSIUM

REACTIONS (3)
  - Generalised oedema [Unknown]
  - Cardio-respiratory arrest [Fatal]
  - Dyspnoea at rest [Unknown]
